FAERS Safety Report 7458060-X (Version None)
Quarter: 2011Q2

REPORT INFORMATION
  Report Type: 
  Country: None (occurrence: None)
  Receive Date: 20110504
  Receipt Date: 20110428
  Transmission Date: 20111010
  Serious: Yes (Hospitalization)
  Sender: FDA-Public Use
  Company Number: FR-PFIZER INC-2011091333

PATIENT
  Age: 74 Year
  Sex: Female

DRUGS (10)
  1. COUMADIN [Interacting]
     Indication: ATRIAL FIBRILLATION
     Dosage: 5 MG, 1X/DAY
     Route: 048
     Dates: start: 20110119, end: 20110127
  2. LEVOTHYROX [Interacting]
     Indication: HYPOTHYROIDISM
     Dosage: 75 UG, 1X/DAY
     Route: 048
  3. LYRICA [Concomitant]
     Indication: NEUROPATHY PERIPHERAL
     Dosage: 150 MG, 2X/DAY
     Route: 048
     Dates: start: 20110104
  4. PARACETAMOL [Interacting]
     Indication: PAIN
     Dosage: 1 G, THREE TIMES AS NEEDED
     Route: 048
     Dates: start: 20110101
  5. TAHOR [Suspect]
     Dosage: 10 MG, 1X/DAY
     Route: 048
     Dates: start: 20110101
  6. METFORMIN [Concomitant]
     Indication: TYPE 1 DIABETES MELLITUS
     Dosage: 850 MG, 3X/DAY
     Route: 048
  7. NEXIUM [Interacting]
     Dosage: 20 MG, 1X/DAY
     Route: 048
     Dates: start: 20101101
  8. SOTALOL [Concomitant]
     Indication: ATRIAL FIBRILLATION
     Dosage: 80 MG, 2X/DAY
     Route: 048
  9. STABLON [Concomitant]
     Indication: DEPRESSION
     Dosage: 12.5 MG, 3X/DAY
     Route: 048
     Dates: start: 20110101
  10. DIGOXIN [Concomitant]
     Indication: ATRIAL FIBRILLATION
     Dosage: 0.5 DF, 1X/DAY
     Route: 048
     Dates: start: 20101101

REACTIONS (2)
  - HAEMATOMA [None]
  - DRUG INTERACTION [None]
